FAERS Safety Report 7651701-3 (Version None)
Quarter: 2011Q3

REPORT INFORMATION
  Report Type: 
  Country: None (occurrence: None)
  Receive Date: 20110802
  Receipt Date: 20110720
  Transmission Date: 20111222
  Serious: Yes (Other)
  Sender: FDA-Public Use
  Company Number: JP-WATSON-2011-11541

PATIENT
  Age: 58 Year
  Sex: Male

DRUGS (4)
  1. CYCLOSPORINE [Suspect]
     Indication: HEART TRANSPLANT
     Dosage: UNKNOWN
     Route: 065
  2. PREDNISOLONE [Suspect]
     Dosage: UNK
     Route: 065
  3. AZATHIOPRINE [Suspect]
     Indication: HEART TRANSPLANT
     Dosage: UNKNOWN
     Route: 065
  4. PREDNISOLONE [Suspect]
     Indication: HEART TRANSPLANT
     Dosage: UNK
     Route: 065

REACTIONS (2)
  - NOCARDIOSIS [None]
  - MUSCLE ABSCESS [None]
